FAERS Safety Report 10351756 (Version 2)
Quarter: 2014Q3

REPORT INFORMATION
  Report Type: Spontaneous
  Country: US (occurrence: US)
  Receive Date: 20140730
  Receipt Date: 20140822
  Transmission Date: 20150326
  Serious: No
  Sender: FDA-Public Use
  Company Number: US-009507513-1407USA013122

PATIENT
  Sex: Male

DRUGS (1)
  1. PROVENTIL [Suspect]
     Active Substance: ALBUTEROL
     Indication: CHRONIC OBSTRUCTIVE PULMONARY DISEASE
     Dosage: INHALE TWO PUFFS BY MOUTH EVERY FOUR TO SIX HOURS AS NEEDED
     Route: 055
     Dates: start: 2012

REACTIONS (4)
  - No adverse event [Unknown]
  - Drug dose omission [Unknown]
  - Medication error [Unknown]
  - Product quality issue [Unknown]
